FAERS Safety Report 15299749 (Version 1)
Quarter: 2018Q3

REPORT INFORMATION
  Report Type: Spontaneous
  Country: US (occurrence: US)
  Receive Date: 20180808
  Receipt Date: 20180808
  Transmission Date: 20181010
  Serious: Yes (Hospitalization)
  Sender: FDA-Public Use
  Company Number: None

PATIENT
  Age: 60 Year
  Sex: Female
  Weight: 60.76 kg

DRUGS (1)
  1. CRIZOTINIB [Suspect]
     Active Substance: CRIZOTINIB
     Indication: MALIGNANT MELANOMA
     Route: 048
     Dates: start: 20170725, end: 20180711

REACTIONS (5)
  - Dyspnoea [None]
  - Pain in extremity [None]
  - Deep vein thrombosis [None]
  - Pulmonary embolism [None]
  - Embolism [None]

NARRATIVE: CASE EVENT DATE: 20180711
